FAERS Safety Report 21752640 (Version 1)
Quarter: 2022Q4

REPORT INFORMATION
  Report Type: Spontaneous
  Country: US (occurrence: None)
  Receive Date: 20221219
  Receipt Date: 20221219
  Transmission Date: 20230112
  Serious: Yes (Other)
  Sender: FDA-Public Use
  Company Number: None

PATIENT
  Age: 24 Year
  Sex: Male
  Weight: 89.81 kg

DRUGS (9)
  1. LAMOTRIGINE [Suspect]
     Active Substance: LAMOTRIGINE
     Indication: Epilepsy
     Dosage: 300 MG DAILY ORAL
  2. AMITRIPTYLINE [Concomitant]
  3. ANDRODERM [Concomitant]
  4. DICLOFENAC [Concomitant]
  5. DIVALPROEX SODIUM [Suspect]
     Active Substance: DIVALPROEX SODIUM
  6. MELATONIN [Concomitant]
     Active Substance: MELATONIN
  7. MIDAZOLAM [Concomitant]
  8. ONDANSETRON [Concomitant]
  9. Valacyclovir [Concomitant]

REACTIONS (8)
  - Treatment noncompliance [None]
  - Ataxia [None]
  - Diplopia [None]
  - Dysarthria [None]
  - Lethargy [None]
  - Anticonvulsant drug level increased [None]
  - Toxicity to various agents [None]
  - Product substitution issue [None]

NARRATIVE: CASE EVENT DATE: 20221201
